FAERS Safety Report 15222603 (Version 1)
Quarter: 2018Q3

REPORT INFORMATION
  Report Type: Spontaneous
  Country: US (occurrence: US)
  Receive Date: 20180731
  Receipt Date: 20180731
  Transmission Date: 20181010
  Serious: No
  Sender: FDA-Public Use
  Company Number: US-SA-2018SA206993

PATIENT
  Age: 37 Year
  Sex: Female

DRUGS (1)
  1. KEVZARA [Suspect]
     Active Substance: SARILUMAB
     Dosage: UNK
     Dates: start: 20180710

REACTIONS (4)
  - Pruritus [Unknown]
  - Burning sensation [Unknown]
  - Injection site reaction [Unknown]
  - Eye swelling [Unknown]

NARRATIVE: CASE EVENT DATE: 20180713
